FAERS Safety Report 9582477 (Version 1)
Quarter: 2013Q4

REPORT INFORMATION
  Report Type: Spontaneous
  Country: US (occurrence: US)
  Receive Date: 20131002
  Receipt Date: 20131002
  Transmission Date: 20140711
  Serious: No
  Sender: FDA-Public Use
  Company Number: US-AMGEN-USASP2013040830

PATIENT
  Age: 42 Year
  Sex: Male
  Weight: 78.01 kg

DRUGS (4)
  1. ENBREL [Suspect]
     Indication: PSORIATIC ARTHROPATHY
     Dosage: UNK
     Route: 058
     Dates: start: 2012
  2. HUMIRA [Concomitant]
     Dosage: UNK
  3. IBUPROFEN [Concomitant]
     Dosage: UNK
  4. MULTIVITAMINS, PLAIN [Concomitant]
     Dosage: UNK

REACTIONS (1)
  - Therapeutic response decreased [Not Recovered/Not Resolved]
